FAERS Safety Report 13655447 (Version 2)
Quarter: 2017Q2

REPORT INFORMATION
  Report Type: Spontaneous
  Country: US (occurrence: US)
  Receive Date: 20170615
  Receipt Date: 20170619
  Transmission Date: 20170830
  Serious: Yes (Other)
  Sender: FDA-Public Use
  Company Number: PHEH2017US018039

PATIENT
  Age: 37 Year
  Sex: Male

DRUGS (2)
  1. TAFINLAR [Suspect]
     Active Substance: DABRAFENIB MESYLATE
     Indication: MALAISE
     Dosage: 150 MG, BID
     Route: 048
     Dates: start: 20170420
  2. MEKINIST [Suspect]
     Active Substance: TRAMETINIB DIMETHYL SULFOXIDE
     Indication: MALAISE
     Dosage: 2 MG, QD
     Route: 048
     Dates: start: 20170420

REACTIONS (2)
  - Visual impairment [Unknown]
  - Uveitis [Unknown]

NARRATIVE: CASE EVENT DATE: 20170501
